FAERS Safety Report 6034813-X (Version None)
Quarter: 2009Q1

REPORT INFORMATION
  Report Type: 
  Country: None (occurrence: None)
  Receive Date: 20090112
  Receipt Date: 20080714
  Transmission Date: 20090719
  Serious: Yes (Other)
  Sender: FDA-Public Use
  Company Number: US-JNJFOC-20080704705

PATIENT
  Age: 59 Year
  Sex: Male

DRUGS (4)
  1. LEVAQUIN [Suspect]
     Indication: PROPHYLAXIS
     Route: 065
     Dates: start: 20080101, end: 20080101
  2. CIPRO [Suspect]
     Indication: PROPHYLAXIS
     Route: 065
     Dates: start: 20080101
  3. CARDIZEM [Concomitant]
  4. PAXIL [Concomitant]

REACTIONS (1)
  - TENDON RUPTURE [None]
